FAERS Safety Report 19160979 (Version 2)
Quarter: 2021Q2

REPORT INFORMATION
  Report Type: Report from Study
  Country: US (occurrence: US)
  Receive Date: 20210421
  Receipt Date: 20210526
  Transmission Date: 20210717
  Serious: No
  Sender: FDA-Public Use
  Company Number: US-AMGEN-USASP2021056082

PATIENT
  Age: 76 Year
  Sex: Male

DRUGS (6)
  1. XTANDI [Concomitant]
     Active Substance: ENZALUTAMIDE
     Dosage: 160 MILLIGRAM, QD
  2. AMLODIPINE [Concomitant]
     Active Substance: AMLODIPINE BESYLATE
     Dosage: 5 MILLIGRAM, QD
  3. ASPIRIN [ACETYLSALICYLIC ACID] [Concomitant]
     Active Substance: ASPIRIN
     Dosage: 81 MILLIGRAM, QD
  4. ATENOLOL. [Concomitant]
     Active Substance: ATENOLOL
     Dosage: 25 MILLIGRAM, BID
  5. REPATHA [Suspect]
     Active Substance: EVOLOCUMAB
     Indication: BLOOD CHOLESTEROL INCREASED
     Dosage: 140 MILLIGRAM, Q2WK
     Route: 065
     Dates: start: 20210227
  6. TRIPTORELIN [Concomitant]
     Active Substance: TRIPTORELIN
     Dosage: 22.5 MILLIGRAM, Q6MO

REACTIONS (7)
  - Oropharyngeal pain [Unknown]
  - Pelvic pain [Not Recovered/Not Resolved]
  - Dyspnoea [Unknown]
  - Myalgia [Unknown]
  - Bone pain [Unknown]
  - Back pain [Unknown]
  - Diplopia [Recovering/Resolving]

NARRATIVE: CASE EVENT DATE: 20210227
